FAERS Safety Report 23213115 (Version 1)
Quarter: 2023Q4

REPORT INFORMATION
  Report Type: Report from Study
  Country: US (occurrence: US)
  Receive Date: 20231121
  Receipt Date: 20231121
  Transmission Date: 20240109
  Serious: Yes (Congenital Anomaly, Other)
  Sender: FDA-Public Use
  Company Number: US-ABBVIE-5504915

PATIENT
  Sex: Female
  Weight: 12 kg

DRUGS (7)
  1. RITONAVIR [Suspect]
     Active Substance: RITONAVIR
     Indication: Maternal exposure timing unspecified
     Route: 064
  2. EMTRICITABINE\TENOFOVIR DISOPROXIL FUMARATE [Suspect]
     Active Substance: EMTRICITABINE\TENOFOVIR DISOPROXIL FUMARATE
     Indication: Maternal exposure timing unspecified
     Route: 064
  3. EMTRICITABINE\TENOFOVIR DISOPROXIL FUMARATE [Suspect]
     Active Substance: EMTRICITABINE\TENOFOVIR DISOPROXIL FUMARATE
     Indication: Maternal exposure timing unspecified
     Dosage: 2ND TRIMESTER
     Route: 064
  4. ABACAVIR\LAMIVUDINE [Suspect]
     Active Substance: ABACAVIR\LAMIVUDINE
     Indication: Maternal exposure timing unspecified
     Route: 064
  5. DARUNAVIR [Suspect]
     Active Substance: DARUNAVIR
     Indication: Maternal exposure timing unspecified
     Route: 064
  6. RALTEGRAVIR [Suspect]
     Active Substance: RALTEGRAVIR
     Indication: Maternal exposure timing unspecified
     Route: 064
  7. RALTEGRAVIR [Suspect]
     Active Substance: RALTEGRAVIR
     Indication: Maternal exposure timing unspecified
     Route: 064

REACTIONS (5)
  - Talipes [Unknown]
  - Congenital diaphragmatic hernia [Unknown]
  - Cerebral ventricle dilatation [Unknown]
  - Foetal exposure during pregnancy [Unknown]
  - Muscle contracture [Unknown]
